FAERS Safety Report 10013899 (Version 1)
Quarter: 2014Q1

REPORT INFORMATION
  Report Type: Spontaneous
  Country: US (occurrence: US)
  Receive Date: 20140316
  Receipt Date: 20140316
  Transmission Date: 20141002
  Serious: No
  Sender: FDA-Public Use
  Company Number: US-LUNDBECK-DKLU1095619

PATIENT
  Sex: Female

DRUGS (14)
  1. ONFI [Suspect]
     Indication: EPILEPSY
     Route: 048
     Dates: start: 201311
  2. ONFI [Suspect]
     Route: 048
  3. ONFI [Suspect]
     Route: 048
  4. ONFI [Suspect]
     Route: 048
  5. ONFI [Suspect]
     Route: 048
  6. ONFI [Suspect]
     Route: 048
  7. ONFI [Suspect]
     Route: 048
  8. ONFI [Suspect]
     Route: 048
  9. ONFI [Suspect]
     Route: 048
  10. ONFI [Suspect]
     Route: 048
  11. ONFI [Suspect]
     Route: 048
     Dates: end: 201311
  12. DEPAKOTE [Concomitant]
     Indication: PRODUCT USED FOR UNKNOWN INDICATION
  13. DILANTIN [Concomitant]
     Indication: PRODUCT USED FOR UNKNOWN INDICATION
  14. KEPPRA [Concomitant]
     Indication: PRODUCT USED FOR UNKNOWN INDICATION

REACTIONS (1)
  - Local swelling [Recovered/Resolved]
